FAERS Safety Report 17770517 (Version 1)
Quarter: 2020Q2

REPORT INFORMATION
  Report Type: Report from Study
  Country: OM (occurrence: OM)
  Receive Date: 20200512
  Receipt Date: 20200512
  Transmission Date: 20200714
  Serious: Yes (Death)
  Sender: FDA-Public Use
  Company Number: OM-ROCHE-2598652

PATIENT

DRUGS (19)
  1. CYCLOPHOSPHAMIDE;DOXORUBICIN [Concomitant]
  2. DOXORUBICIN [Concomitant]
     Active Substance: DOXORUBICIN
  3. CAPECITABINE. [Concomitant]
     Active Substance: CAPECITABINE
     Route: 065
  4. ERIBULIN [Concomitant]
     Active Substance: ERIBULIN
  5. LAPATINIB [Concomitant]
     Active Substance: LAPATINIB
  6. CARBOPLATIN. [Concomitant]
     Active Substance: CARBOPLATIN
  7. DOCETAXEL. [Concomitant]
     Active Substance: DOCETAXEL
  8. EXEMESTANE. [Concomitant]
     Active Substance: EXEMESTANE
  9. NAB-PACLITAXEL [Concomitant]
     Active Substance: PACLITAXEL
  10. GEMCITABINE. [Concomitant]
     Active Substance: GEMCITABINE
  11. CYCLOPHOSPHAMIDE;EPIRUBICIN HYDROCHLORIDE;FLUOROURACIL [Concomitant]
  12. LETROZOLE. [Concomitant]
     Active Substance: LETROZOLE
  13. VINORELBINE [Concomitant]
     Active Substance: VINORELBINE TARTRATE
  14. TRASTUZUMAB. [Suspect]
     Active Substance: TRASTUZUMAB
     Indication: HER2 POSITIVE BREAST CANCER
     Dosage: DOSE OF 8 MG/KG OF BODY WEIGHT ADMINISTERED AS A 90-MIN INTRAVENOUS INFUSION AS LOADING DOSE
     Route: 042
  15. TRASTUZUMAB. [Suspect]
     Active Substance: TRASTUZUMAB
     Dosage: FOLLOWED BY MAINTENANCE DOSES OF 6 MG/KG GIVEN EVERY THREE WEEKS.
     Route: 042
  16. PERTUZUMAB. [Concomitant]
     Active Substance: PERTUZUMAB
     Route: 065
  17. EPIRUBICIN [Concomitant]
     Active Substance: EPIRUBICIN
  18. PACLITAXEL. [Concomitant]
     Active Substance: PACLITAXEL
  19. TAMOXIFEN [Concomitant]
     Active Substance: TAMOXIFEN

REACTIONS (1)
  - Cardiac failure [Fatal]
